FAERS Safety Report 8248214-7 (Version None)
Quarter: 2012Q1

REPORT INFORMATION
  Report Type: 
  Country: None (occurrence: None)
  Receive Date: 20120330
  Receipt Date: 20120323
  Transmission Date: 20120608
  Serious: Yes (Hospitalization)
  Sender: FDA-Public Use
  Company Number: JP-VERTEX PHARMACEUTICALS INC.-AE-2012-004098

PATIENT
  Age: 56 Year
  Sex: Male

DRUGS (8)
  1. TELAVIC (TELAPREVIR) [Suspect]
     Indication: HEPATITIS C
     Route: 048
     Dates: start: 20120314, end: 20120317
  2. PEGINTERFERON ALFA-2B [Concomitant]
     Indication: HEPATITIS C
     Route: 030
     Dates: start: 20080513, end: 20090414
  3. TELAVIC (TELAPREVIR) [Suspect]
     Route: 048
     Dates: start: 20120323
  4. PEGINTERFERON ALFA-2B [Concomitant]
     Route: 051
     Dates: start: 20120314
  5. TELAVIC (TELAPREVIR) [Suspect]
     Route: 048
     Dates: start: 20120321
  6. RIBAVIRIN [Concomitant]
     Indication: HEPATITIS C
     Route: 048
     Dates: start: 20120314
  7. COPEGUS [Concomitant]
     Indication: HEPATITIS C
     Route: 048
     Dates: start: 20080513, end: 20090421
  8. URSO 250 [Concomitant]
     Route: 048
     Dates: start: 20100330, end: 20120313

REACTIONS (1)
  - ERYTHEMA [None]
